FAERS Safety Report 18015501 (Version 2)
Quarter: 2022Q1

REPORT INFORMATION
  Report Type: Spontaneous
  Country: TW (occurrence: TW)
  Receive Date: 20200713
  Receipt Date: 20220331
  Transmission Date: 20220423
  Serious: Yes (Other)
  Sender: FDA-Public Use
  Company Number: TW-ALLERGAN-2026285US

PATIENT
  Sex: Male

DRUGS (1)
  1. BOTOX [Suspect]
     Active Substance: ONABOTULINUMTOXINA
     Indication: Granuloma
     Dosage: 1 UNITS, SINGLE
     Route: 030

REACTIONS (4)
  - Choking [Recovered/Resolved]
  - Aspiration [Recovered/Resolved]
  - Off label use [Unknown]
  - Drug ineffective for unapproved indication [Unknown]
